FAERS Safety Report 7124396-5 (Version None)
Quarter: 2010Q4

REPORT INFORMATION
  Report Type: 
  Country: None (occurrence: None)
  Receive Date: 20101126
  Receipt Date: 20101112
  Transmission Date: 20110411
  Serious: Yes (Hospitalization)
  Sender: FDA-Public Use
  Company Number: GXKR2010US12814

PATIENT
  Age: 50 Year
  Sex: Female

DRUGS (1)
  1. CIPROFLOXACIN [Suspect]
     Indication: CYSTITIS
     Route: 065

REACTIONS (6)
  - ABDOMINAL PAIN UPPER [None]
  - ABDOMINAL TENDERNESS [None]
  - FUNGAL OESOPHAGITIS [None]
  - LEUKOPENIA [None]
  - NAUSEA [None]
  - THROMBOCYTOPENIA [None]
